FAERS Safety Report 13242625 (Version 1)
Quarter: 2017Q1

REPORT INFORMATION
  Report Type: Report from Study
  Country: None (occurrence: US)
  Receive Date: 20170216
  Receipt Date: 20170216
  Transmission Date: 20170428
  Serious: Yes (Other)
  Sender: FDA-Public Use
  Company Number: US-ABBVIE-17K-163-1840084-00

PATIENT
  Age: 45 Year
  Sex: Male

DRUGS (1)
  1. HUMIRA [Suspect]
     Active Substance: ADALIMUMAB
     Indication: PSORIASIS
     Route: 058

REACTIONS (16)
  - Joint swelling [Unknown]
  - Diabetes mellitus [Unknown]
  - Post procedural complication [Unknown]
  - Hiatus hernia [Unknown]
  - Candida infection [Unknown]
  - Exostosis [Unknown]
  - Hypophagia [Unknown]
  - Torticollis [Not Recovered/Not Resolved]
  - Sleep disorder [Unknown]
  - Bone graft [Unknown]
  - Weight decreased [Unknown]
  - Choking [Unknown]
  - Spinal fusion surgery [Unknown]
  - Dyskinesia [Unknown]
  - Fall [Unknown]
  - Tremor [Unknown]

NARRATIVE: CASE EVENT DATE: 2016
